FAERS Safety Report 18755615 (Version 1)
Quarter: 2021Q1

REPORT INFORMATION
  Report Type: Spontaneous
  Country: US (occurrence: US)
  Receive Date: 20210115
  Receipt Date: 20210115
  Transmission Date: 20210419
  Serious: No
  Sender: FDA-Public Use
  Company Number: None

PATIENT
  Age: 35 Year
  Sex: Female

DRUGS (8)
  1. ARMODAFINIL. [Suspect]
     Active Substance: ARMODAFINIL
     Indication: HYPERSOMNIA
     Dosage: ?          QUANTITY:1 TABLET(S);?
  2. PRISTIQ EXTENDED?RELEASE [Concomitant]
     Active Substance: DESVENLAFAXINE SUCCINATE
  3. ABILIFY [Concomitant]
     Active Substance: ARIPIPRAZOLE
  4. LAMICTAL [Concomitant]
     Active Substance: LAMOTRIGINE
  5. CPAP [Concomitant]
     Active Substance: DEVICE
  6. PROBIOTIC [Concomitant]
     Active Substance: PROBIOTICS NOS
  7. MULTIVITAMIN [Concomitant]
     Active Substance: VITAMINS
  8. ARMODAFINIL. [Suspect]
     Active Substance: ARMODAFINIL
     Indication: SLEEP APNOEA SYNDROME
     Dosage: ?          QUANTITY:1 TABLET(S);?

REACTIONS (6)
  - Loss of personal independence in daily activities [None]
  - Depression [None]
  - Product substitution issue [None]
  - Fatigue [None]
  - Asthenia [None]
  - Mood swings [None]

NARRATIVE: CASE EVENT DATE: 20170820
